FAERS Safety Report 4668530-5 (Version None)
Quarter: 2005Q2

REPORT INFORMATION
  Report Type: 
  Country: None (occurrence: None)
  Receive Date: 20050523
  Receipt Date: 20050411
  Transmission Date: 20051028
  Serious: Yes (Other)
  Sender: FDA-Public Use
  Company Number: PHNR2005AU00751

PATIENT
  Sex: Female

DRUGS (2)
  1. ZOMETA [Suspect]
  2. HERCEPTIN [Concomitant]

REACTIONS (3)
  - ASEPTIC NECROSIS BONE [None]
  - JAW DISORDER [None]
  - OSTEONECROSIS [None]
